FAERS Safety Report 10018074 (Version 1)
Quarter: 2014Q1

REPORT INFORMATION
  Report Type: Spontaneous
  Country: US (occurrence: US)
  Receive Date: 20140318
  Receipt Date: 20140318
  Transmission Date: 20141002
  Serious: Yes (Hospitalization)
  Sender: FDA-Public Use
  Company Number: US-BRISTOL-MYERS SQUIBB COMPANY-18920033

PATIENT
  Age: 77 Year
  Sex: Male

DRUGS (6)
  1. ERBITUX [Suspect]
     Dates: start: 20121206
  2. TYLENOL [Concomitant]
  3. ALOXI [Concomitant]
     Dates: start: 20121206
  4. BENADRYL [Concomitant]
     Dates: start: 20121206
  5. ATROPINE [Concomitant]
     Dates: start: 20121206
  6. DECADRON [Concomitant]
     Dates: start: 20121206

REACTIONS (1)
  - Anaphylactic reaction [Unknown]
